FAERS Safety Report 6068178-4 (Version None)
Quarter: 2009Q1

REPORT INFORMATION
  Report Type: 
  Country: None (occurrence: None)
  Receive Date: 20090206
  Receipt Date: 20090202
  Transmission Date: 20090719
  Serious: Yes (Other)
  Sender: FDA-Public Use
  Company Number: IE-BAYER-200910342BNE

PATIENT
  Age: 3 Month
  Sex: Female

DRUGS (28)
  1. CIPROFLOXACIN HCL [Suspect]
     Indication: SEPSIS
     Route: 048
     Dates: start: 20081222, end: 20090101
  2. ABDEC [Concomitant]
     Indication: DRUG USE FOR UNKNOWN INDICATION
  3. FER-IN-SOL [Concomitant]
     Indication: DRUG USE FOR UNKNOWN INDICATION
  4. ONE ALPHA [Concomitant]
     Indication: DRUG USE FOR UNKNOWN INDICATION
  5. MAGNESIUM GLYCEROPHOSPHATE [Concomitant]
     Indication: DRUG USE FOR UNKNOWN INDICATION
  6. FURSEMIDE [Concomitant]
     Indication: DRUG USE FOR UNKNOWN INDICATION
  7. ASPIRIN [Concomitant]
     Indication: DRUG USE FOR UNKNOWN INDICATION
  8. CALCIUM SANDOZ [Concomitant]
     Indication: DRUG USE FOR UNKNOWN INDICATION
  9. KAY CIEL DURA-TABS [Concomitant]
     Indication: DRUG USE FOR UNKNOWN INDICATION
  10. CLONIDINE HCL [Concomitant]
     Indication: DRUG USE FOR UNKNOWN INDICATION
  11. MORPHINE [Concomitant]
     Indication: DRUG USE FOR UNKNOWN INDICATION
  12. MILRINONE [Concomitant]
     Indication: DRUG USE FOR UNKNOWN INDICATION
  13. TRICLOFOS [Concomitant]
     Indication: DRUG USE FOR UNKNOWN INDICATION
  14. PARALINK [Concomitant]
     Indication: DRUG USE FOR UNKNOWN INDICATION
  15. CEFTRIAXONE [Concomitant]
     Indication: DRUG USE FOR UNKNOWN INDICATION
  16. GENTAMICIN [Concomitant]
     Indication: DRUG USE FOR UNKNOWN INDICATION
  17. TEICOPLANIN [Concomitant]
     Indication: DRUG USE FOR UNKNOWN INDICATION
  18. CIPROFLOXACIN HCL [Concomitant]
     Indication: DRUG USE FOR UNKNOWN INDICATION
  19. ZYVOX [Concomitant]
     Indication: DRUG USE FOR UNKNOWN INDICATION
  20. MEROPENEM [Concomitant]
     Indication: DRUG USE FOR UNKNOWN INDICATION
  21. VANCOMYCIN [Concomitant]
     Indication: DRUG USE FOR UNKNOWN INDICATION
  22. ERYTHROPED [Concomitant]
     Indication: DRUG USE FOR UNKNOWN INDICATION
  23. ZANTAC [Concomitant]
     Indication: DRUG USE FOR UNKNOWN INDICATION
  24. SPIRONOLACTONE [Concomitant]
     Indication: DRUG USE FOR UNKNOWN INDICATION
  25. ACETAZOLAMIDE [Concomitant]
     Indication: DRUG USE FOR UNKNOWN INDICATION
  26. SYNAGIS [Concomitant]
     Indication: DRUG USE FOR UNKNOWN INDICATION
  27. KETAMINE HCL [Concomitant]
     Indication: DRUG USE FOR UNKNOWN INDICATION
  28. KONAKION [Concomitant]
     Indication: DRUG USE FOR UNKNOWN INDICATION

REACTIONS (3)
  - ALANINE AMINOTRANSFERASE INCREASED [None]
  - ASPARTATE AMINOTRANSFERASE INCREASED [None]
  - BLOOD BILIRUBIN INCREASED [None]
